FAERS Safety Report 6738134-9 (Version None)
Quarter: 2010Q2

REPORT INFORMATION
  Report Type: 
  Country: None (occurrence: None)
  Receive Date: 20100524
  Receipt Date: 20100511
  Transmission Date: 20101027
  Serious: Yes (Hospitalization)
  Sender: FDA-Public Use
  Company Number: GB-CELGENEUS-167-50794-10051059

PATIENT
  Age: 69 Year
  Sex: Male

DRUGS (5)
  1. VIDAZA [Suspect]
     Indication: ACUTE MYELOID LEUKAEMIA
     Route: 058
     Dates: start: 20070402, end: 20091024
  2. VALPROATE SODIUM [Suspect]
     Indication: ACUTE MYELOID LEUKAEMIA
     Route: 048
     Dates: start: 20070402, end: 20070405
  3. VALPROATE SODIUM [Suspect]
     Route: 048
     Dates: start: 20070406, end: 20081103
  4. ATRA [Suspect]
     Indication: ACUTE MYELOID LEUKAEMIA
     Route: 048
     Dates: start: 20070402, end: 20081103
  5. THEOPHYLLINE [Suspect]
     Indication: ACUTE MYELOID LEUKAEMIA
     Route: 048
     Dates: start: 20070402, end: 20081103

REACTIONS (1)
  - EPISTAXIS [None]
